FAERS Safety Report 5177720-7 (Version None)
Quarter: 2006Q4

REPORT INFORMATION
  Report Type: 
  Country: None (occurrence: None)
  Receive Date: 20061207
  Receipt Date: 20061127
  Transmission Date: 20070319
  Serious: Yes (Other)
  Sender: FDA-Public Use
  Company Number: 2006146902

PATIENT
  Age: 61 Year
  Sex: Female
  Weight: 113.3993 kg

DRUGS (6)
  1. CELEBREX [Suspect]
     Indication: RHEUMATOID ARTHRITIS
     Dosage: 200 MG (200 MG, 1 IN 1 D)
  2. BEXTRA [Suspect]
     Indication: RHEUMATOID ARTHRITIS
  3. VIOXX [Suspect]
     Indication: RHEUMATOID ARTHRITIS
  4. PREDNISONE TAB [Concomitant]
  5. HYDROCODONE BITARTRATE [Concomitant]
  6. NEURONTIN [Concomitant]

REACTIONS (11)
  - BLOOD DISORDER [None]
  - CARTILAGE INJURY [None]
  - CAUSTIC INJURY [None]
  - GASTROINTESTINAL DISORDER [None]
  - GASTROOESOPHAGEAL REFLUX DISEASE [None]
  - INFECTION [None]
  - MUSCLE SPASMS [None]
  - PAIN [None]
  - SINUSITIS [None]
  - SWELLING [None]
  - URINARY TRACT INFECTION [None]
